FAERS Safety Report 8210621-6 (Version None)
Quarter: 2012Q1

REPORT INFORMATION
  Report Type: 
  Country: None (occurrence: None)
  Receive Date: 20120314
  Receipt Date: 20120307
  Transmission Date: 20120608
  Serious: Yes (Other)
  Sender: FDA-Public Use
  Company Number: JP-MERCK-1203USA01268

PATIENT

DRUGS (2)
  1. COZAAR [Suspect]
     Route: 048
  2. HYZAAR [Suspect]
     Route: 048

REACTIONS (1)
  - PANCREATIC CARCINOMA [None]
